FAERS Safety Report 4834620-7 (Version None)
Quarter: 2005Q4

REPORT INFORMATION
  Report Type: 
  Country: None (occurrence: None)
  Receive Date: 20051122
  Receipt Date: 20050520
  Transmission Date: 20060501
  Serious: No
  Sender: FDA-Public Use
  Company Number: US-BRISTOL-MYERS SQUIBB COMPANY-12976809

PATIENT
  Age: 73 Year
  Sex: Male
  Weight: 82 kg

DRUGS (8)
  1. PRAVACHOL [Suspect]
     Indication: BLOOD CHOLESTEROL INCREASED
  2. VITAMIN E [Concomitant]
  3. ASCORBIC ACID [Concomitant]
  4. MULTI-VITAMIN [Concomitant]
  5. CALCIUM GLUCONATE [Concomitant]
  6. MAGNESIUM [Concomitant]
  7. ZINC [Concomitant]
  8. COENZYME Q10 [Concomitant]

REACTIONS (3)
  - DIFFICULTY IN WALKING [None]
  - MUSCLE RIGIDITY [None]
  - PAIN IN EXTREMITY [None]
